FAERS Safety Report 6006185-8 (Version None)
Quarter: 2008Q4

REPORT INFORMATION
  Report Type: 
  Country: None (occurrence: None)
  Receive Date: 20081217
  Receipt Date: 20081205
  Transmission Date: 20090506
  Serious: Yes (Other)
  Sender: FDA-Public Use
  Company Number: US-ROCHE-601738

PATIENT
  Sex: Female

DRUGS (4)
  1. PEGASYS [Suspect]
     Indication: HEPATITIS C
     Dosage: FORM: PRE FILLED SYRINGES
     Route: 065
     Dates: start: 20081017
  2. COPEGUS [Suspect]
     Indication: HEPATITIS C
     Dosage: IN DIVIDED DOSES
     Route: 065
     Dates: start: 20081017
  3. PROZAC [Concomitant]
  4. BUSPIRONE HCL [Concomitant]
     Indication: ANXIETY
     Dates: start: 20081121

REACTIONS (3)
  - NAUSEA [None]
  - SELF INJURIOUS BEHAVIOUR [None]
  - VOMITING [None]
